FAERS Safety Report 6124839-X (Version None)
Quarter: 2009Q1

REPORT INFORMATION
  Report Type: 
  Country: None (occurrence: None)
  Receive Date: 20090319
  Receipt Date: 20090309
  Transmission Date: 20090719
  Serious: Yes (Other)
  Sender: FDA-Public Use
  Company Number: ES-PFIZER INC-2009167996

PATIENT

DRUGS (1)
  1. CELECOXIB [Suspect]
     Indication: ARTHRALGIA
     Dosage: 200 MG, AS NEEDED
     Route: 048
     Dates: start: 20090113, end: 20090113

REACTIONS (3)
  - GENERALISED ERYTHEMA [None]
  - HYPOTENSION [None]
  - SOMNOLENCE [None]
